FAERS Safety Report 9729045 (Version 2)
Quarter: 2013Q4

REPORT INFORMATION
  Report Type: Report from Study
  Country: AR (occurrence: AR)
  Receive Date: 20131204
  Receipt Date: 20131204
  Transmission Date: 20140711
  Serious: Yes (Other)
  Sender: FDA-Public Use
  Company Number: PHHY2012AR054850

PATIENT
  Age: 84 Year
  Sex: Female

DRUGS (1)
  1. EXELON PATCH [Suspect]
     Indication: MEMORY IMPAIRMENT
     Dosage: 2 PATCH DAILY
     Route: 062

REACTIONS (3)
  - Cataract [Unknown]
  - Visual impairment [Not Recovered/Not Resolved]
  - Drug ineffective [Recovering/Resolving]
